FAERS Safety Report 20721140 (Version 11)
Quarter: 2024Q2

REPORT INFORMATION
  Report Type: Report from Study
  Country: DE (occurrence: DE)
  Receive Date: 20220418
  Receipt Date: 20240506
  Transmission Date: 20240715
  Serious: Yes (Hospitalization, Other)
  Sender: FDA-Public Use
  Company Number: DE-NOVARTISPH-NVSC2022DE086268

PATIENT
  Sex: Female
  Weight: 95 kg

DRUGS (2)
  1. MAYZENT [Suspect]
     Active Substance: SIPONIMOD
     Indication: Secondary progressive multiple sclerosis
     Dosage: 2 MG, QD
     Route: 048
     Dates: start: 20210216, end: 20240202
  2. MAYZENT [Suspect]
     Active Substance: SIPONIMOD
     Dosage: 0 MG
     Route: 065
     Dates: start: 20240203

REACTIONS (4)
  - Myocardial infarction [Recovered/Resolved]
  - Myocardial infarction [Recovered/Resolved]
  - Trigeminal neuralgia [Not Recovered/Not Resolved]
  - Coronary artery disease [Recovering/Resolving]

NARRATIVE: CASE EVENT DATE: 20210901
